FAERS Safety Report 8104500-2 (Version None)
Quarter: 2012Q1

REPORT INFORMATION
  Report Type: 
  Country: None (occurrence: None)
  Receive Date: 20120130
  Receipt Date: 20120119
  Transmission Date: 20120608
  Serious: Yes (Hospitalization)
  Sender: FDA-Public Use
  Company Number: US-JNJFOC-20110901965

PATIENT
  Sex: Male
  Weight: 57.7 kg

DRUGS (14)
  1. REMICADE [Suspect]
     Indication: INFLAMMATORY BOWEL DISEASE
     Route: 042
     Dates: start: 20100913
  2. LIDOCAINE/PRILOCAINE [Concomitant]
  3. REMICADE [Suspect]
     Route: 042
     Dates: start: 20110425
  4. ACETAMINOPHEN [Concomitant]
  5. REMICADE [Suspect]
     Route: 042
     Dates: start: 20101116
  6. REMICADE [Suspect]
     Route: 042
     Dates: start: 20110718
  7. REMICADE [Suspect]
     Route: 042
     Dates: start: 20100927
  8. DOCUSATE SODIUM [Concomitant]
     Route: 048
  9. METRONIDAZOLE [Concomitant]
  10. REMICADE [Suspect]
     Route: 042
     Dates: start: 20110103
  11. REMICADE [Suspect]
     Route: 042
     Dates: start: 20110606
  12. DIPHENHYDRAMINE HCL [Concomitant]
  13. OXYCODONE HCL [Concomitant]
  14. CEFPODOXIME PROXETIL [Concomitant]

REACTIONS (3)
  - ABDOMINAL ABSCESS [None]
  - LARGE INTESTINE PERFORATION [None]
  - POSTOPERATIVE WOUND INFECTION [None]
